FAERS Safety Report 7409908-6 (Version None)
Quarter: 2011Q2

REPORT INFORMATION
  Report Type: 
  Country: None (occurrence: None)
  Receive Date: 20110412
  Receipt Date: 20110331
  Transmission Date: 20111010
  Serious: Yes (Hospitalization, Other)
  Sender: FDA-Public Use
  Company Number: US-ELI_LILLY_AND_COMPANY-US201104000183

PATIENT
  Sex: Female
  Weight: 121.9 kg

DRUGS (7)
  1. BYETTA [Suspect]
     Dosage: 5 UG, BID
     Route: 058
  2. CYMBALTA [Concomitant]
     Dosage: UNK
  3. GLIPIZIDE [Concomitant]
     Dosage: 5 MG, BID
  4. BYETTA [Suspect]
     Indication: TYPE 2 DIABETES MELLITUS
     Dosage: 5 UG, BID
     Route: 058
  5. LANTUS [Concomitant]
     Dosage: 10 U, EACH MORNING
  6. BYETTA [Suspect]
     Dosage: 10 UG, BID
     Route: 058
  7. METFORMIN HCL [Concomitant]

REACTIONS (8)
  - DEPRESSED LEVEL OF CONSCIOUSNESS [None]
  - ANAEMIA [None]
  - BLOOD GLUCOSE DECREASED [None]
  - OFF LABEL USE [None]
  - COMA [None]
  - PNEUMONIA [None]
  - ABNORMAL BEHAVIOUR [None]
  - BLOOD GLUCOSE INCREASED [None]
